FAERS Safety Report 9024727 (Version 2)
Quarter: 2013Q2

REPORT INFORMATION
  Report Type: Spontaneous
  Country: BR (occurrence: BR)
  Receive Date: 20130121
  Receipt Date: 20130408
  Transmission Date: 20140414
  Serious: Yes (Other)
  Sender: FDA-Public Use
  Company Number: BR-BIOGENIDEC-2013BI003965

PATIENT
  Age: 25 Year
  Sex: Female
  Weight: 92 kg

DRUGS (4)
  1. AVONEX [Suspect]
     Indication: MULTIPLE SCLEROSIS
     Route: 030
     Dates: start: 20100926, end: 20120321
  2. AVONEX [Suspect]
     Indication: MULTIPLE SCLEROSIS
     Route: 030
     Dates: start: 20121212
  3. FLUOXETIN [Concomitant]
     Route: 048
     Dates: start: 20121212
  4. OMEPRAZOLE [Concomitant]
     Route: 048
     Dates: start: 20121212

REACTIONS (1)
  - Prolonged labour [Recovered/Resolved]
